FAERS Safety Report 25668243 (Version 2)
Quarter: 2025Q3

REPORT INFORMATION
  Report Type: Spontaneous
  Country: EU (occurrence: EU)
  Receive Date: 20250812
  Receipt Date: 20250924
  Transmission Date: 20251021
  Serious: Yes (Other)
  Sender: EMD SERONO INC
  Company Number: None

PATIENT
  Age: 12 Year
  Sex: Female
  Weight: 34 kg

DRUGS (4)
  1. SAIZEN [Suspect]
     Active Substance: SOMATROPIN
     Indication: Growth retardation
     Dates: start: 20231005
  2. SAIZEN [Suspect]
     Active Substance: SOMATROPIN
  3. SAIZEN [Suspect]
     Active Substance: SOMATROPIN
     Dates: start: 202411
  4. SAIZEN [Suspect]
     Active Substance: SOMATROPIN
     Dates: end: 20250519

REACTIONS (2)
  - Hidradenitis [Recovered/Resolved]
  - Headache [Not Recovered/Not Resolved]

NARRATIVE: CASE EVENT DATE: 20240401
